FAERS Safety Report 15826807 (Version 6)
Quarter: 2019Q1

REPORT INFORMATION
  Report Type: Report from Study
  Country: GB (occurrence: GB)
  Receive Date: 20190115
  Receipt Date: 20190214
  Transmission Date: 20190417
  Serious: Yes (Death)
  Sender: FDA-Public Use
  Company Number: GB-PFIZER INC-2019017246

PATIENT
  Sex: Male

DRUGS (7)
  1. PHOLCODINE [Interacting]
     Active Substance: PHOLCODINE
     Dosage: UNK
  2. METHYLAMPHETAMINE [Interacting]
     Active Substance: METHAMPHETAMINE
     Dosage: UNK
  3. GAMMA-BUTYROLACTONE [Suspect]
     Active Substance: BUTYROLACTONE
     Dosage: UNK
  4. DIAZEPAM. [Interacting]
     Active Substance: DIAZEPAM
     Dosage: UNK
  5. MEPHEDRONE [Interacting]
     Active Substance: MEPHEDRONE
     Dosage: UNK
  6. KETAMINE HCL [Suspect]
     Active Substance: KETAMINE HYDROCHLORIDE
     Dosage: UNK
  7. ZOPICLONE [Interacting]
     Active Substance: ZOPICLONE
     Dosage: UNK

REACTIONS (2)
  - Toxicity to various agents [Fatal]
  - Drug interaction [Fatal]
